FAERS Safety Report 14323638 (Version 1)
Quarter: 2017Q4

REPORT INFORMATION
  Report Type: Spontaneous
  Country: PE (occurrence: PE)
  Receive Date: 20171222
  Receipt Date: 20171222
  Transmission Date: 20180321
  Serious: Yes (Disabling)
  Sender: FDA-Public Use
  Company Number: None

PATIENT
  Age: 57 Year
  Sex: Female
  Weight: 63 kg

DRUGS (3)
  1. CENTRUM WOMEN OVER 50 [Concomitant]
  2. LIVID TIBOLONE [Concomitant]
  3. LEVAQUIN [Suspect]
     Active Substance: LEVOFLOXACIN
     Indication: URINARY TRACT INFECTION
     Route: 048
     Dates: start: 20171211, end: 20171216

REACTIONS (3)
  - Arthralgia [None]
  - Fatigue [None]
  - Tendon pain [None]

NARRATIVE: CASE EVENT DATE: 20171218
